FAERS Safety Report 5078899-8 (Version None)
Quarter: 2006Q3

REPORT INFORMATION
  Report Type: 
  Country: None (occurrence: None)
  Receive Date: 20060809
  Receipt Date: 20060809
  Transmission Date: 20061208
  Serious: Yes (Other)
  Sender: FDA-Public Use
  Company Number: None

PATIENT
  Age: 57 Year
  Sex: Male
  Weight: 113.3993 kg

DRUGS (5)
  1. ERBITUX [Suspect]
     Indication: PANCREATIC CARCINOMA
     Dosage: 920 MG IV X 1 (LOADING DOSE)
     Route: 042
     Dates: start: 20060327
  2. OXYCONTIN [Concomitant]
  3. OXYCODONE HCL [Concomitant]
  4. AMBIEN [Concomitant]
  5. NEXIUM [Concomitant]

REACTIONS (5)
  - DRUG HYPERSENSITIVITY [None]
  - FLUSHING [None]
  - INFUSION RELATED REACTION [None]
  - PRURITUS [None]
  - RASH ERYTHEMATOUS [None]
